FAERS Safety Report 7167174-3 (Version None)
Quarter: 2010Q4

REPORT INFORMATION
  Report Type: 
  Country: None (occurrence: None)
  Receive Date: 20101216
  Receipt Date: 20101203
  Transmission Date: 20110411
  Serious: Yes (Hospitalization)
  Sender: FDA-Public Use
  Company Number: PHHY2010JP82818

PATIENT
  Sex: Male
  Weight: 76 kg

DRUGS (14)
  1. AFINITOR [Suspect]
     Indication: METASTATIC RENAL CELL CARCINOMA
     Dosage: 10 MG, UNK
     Route: 048
     Dates: start: 20100527, end: 20100531
  2. AFINITOR [Suspect]
     Dosage: 5 MG, UNK
     Route: 048
     Dates: start: 20100602
  3. AFINITOR [Suspect]
     Dosage: 10 MG, UNK
     Route: 048
     Dates: start: 20100608
  4. VOLTAREN [Concomitant]
     Dosage: 25 MG, UNK
     Route: 048
     Dates: start: 20090302
  5. INTERFERON ALFA [Concomitant]
     Dosage: 3000000 IU, UNK
     Dates: start: 20090603, end: 20100513
  6. ASPIRIN [Concomitant]
     Dosage: 10 MG/H, UNK
     Route: 048
     Dates: start: 20090302
  7. TENORMIN [Concomitant]
     Dosage: 50 MG, UNK
     Route: 048
     Dates: start: 20090302
  8. CARDENALIN [Concomitant]
     Dosage: 2 MG, UNK
     Route: 048
     Dates: start: 20090302
  9. CAPTOPRIL [Concomitant]
     Dosage: 4 MG, UNK
     Route: 048
     Dates: start: 20090302
  10. LASIX [Concomitant]
     Dosage: 40 MG, UNK
     Route: 048
     Dates: start: 20090302
  11. ADALAT [Concomitant]
     Dosage: 20 MG, UNK
     Route: 048
     Dates: start: 20090302
  12. MYSLEE [Concomitant]
     Dosage: 5 MG, UNK
     Route: 048
     Dates: start: 20090302
  13. TAGAMET [Concomitant]
     Dosage: 100 MG, UNK
     Route: 048
     Dates: start: 20090302
  14. ZYLORIC ^FRESENIUS^ [Concomitant]
     Dosage: 800 MG, UNK
     Route: 048
     Dates: start: 20090302

REACTIONS (1)
  - HERPES ZOSTER [None]
